FAERS Safety Report 6045906-5 (Version None)
Quarter: 2009Q1

REPORT INFORMATION
  Report Type: 
  Country: None (occurrence: None)
  Receive Date: 20090121
  Receipt Date: 20090113
  Transmission Date: 20090719
  Serious: Yes (Life-Threatening, Other)
  Sender: FDA-Public Use
  Company Number: US-KINGPHARMUSA00001-K200900036

PATIENT
  Sex: Female

DRUGS (4)
  1. EPIPEN [Suspect]
     Indication: ANAPHYLACTIC SHOCK
     Dosage: 0.30 MG, SINGLE
     Route: 030
     Dates: start: 20081213, end: 20081213
  2. NEBIVOLOL [Suspect]
     Indication: HYPERTENSION
     Dosage: 5 MG, QD
     Route: 048
     Dates: start: 20081212, end: 20081213
  3. BENADRYL [Concomitant]
     Indication: PRURITUS
     Dosage: UNK
     Dates: start: 20081212, end: 20081212
  4. BENADRYL [Concomitant]
     Indication: URTICARIA

REACTIONS (6)
  - DRUG INEFFECTIVE [None]
  - GASTRIC PH DECREASED [None]
  - MALAISE [None]
  - PEPTIC ULCER [None]
  - SERUM SICKNESS [None]
  - SWELLING [None]
